FAERS Safety Report 10589833 (Version 1)
Quarter: 2014Q4

REPORT INFORMATION
  Report Type: Spontaneous
  Country: US (occurrence: None)
  Receive Date: 20141117
  Receipt Date: 20141117
  Transmission Date: 20150529
  Serious: Yes (Disabling)
  Sender: FDA-Public Use
  Company Number: None

PATIENT
  Age: 36 Year
  Sex: Female
  Weight: 56.7 kg

DRUGS (1)
  1. JANUMET [Suspect]
     Active Substance: METFORMIN HYDROCHLORIDE\SITAGLIPTIN PHOSPHATE
     Indication: TYPE 2 DIABETES MELLITUS
     Route: 048
     Dates: start: 20140808, end: 20140917

REACTIONS (7)
  - Exercise tolerance decreased [None]
  - Disturbance in attention [None]
  - Asthenia [None]
  - Memory impairment [None]
  - Blood glucose increased [None]
  - Impaired work ability [None]
  - Activities of daily living impaired [None]

NARRATIVE: CASE EVENT DATE: 20140809
